FAERS Safety Report 13922446 (Version 2)
Quarter: 2017Q3

REPORT INFORMATION
  Report Type: Report from Study
  Country: KR (occurrence: KR)
  Receive Date: 20170830
  Receipt Date: 20170905
  Transmission Date: 20171127
  Serious: Yes (Death, Other)
  Sender: FDA-Public Use
  Company Number: KR-AMGEN-KORSL2017130961

PATIENT
  Sex: Male

DRUGS (1)
  1. KYPROLIS [Suspect]
     Active Substance: CARFILZOMIB
     Indication: PLASMA CELL MYELOMA
     Dosage: UNK
     Route: 065
     Dates: start: 20170713

REACTIONS (2)
  - Urinary tract disorder [Unknown]
  - Sepsis [Fatal]

NARRATIVE: CASE EVENT DATE: 2017
